FAERS Safety Report 17775606 (Version 3)
Quarter: 2020Q4

REPORT INFORMATION
  Report Type: Report from Study
  Country: US (occurrence: US)
  Receive Date: 20200513
  Receipt Date: 20201230
  Transmission Date: 20210113
  Serious: No
  Sender: FDA-Public Use
  Company Number: US-ACADIA PHARMACEUTICALS INC.-ACA-2020-PIM-001092

PATIENT
  Sex: Male

DRUGS (20)
  1. FLUDROCORTISONE [Concomitant]
     Active Substance: FLUDROCORTISONE
  2. MELATONIN [Concomitant]
     Active Substance: MELATONIN
  3. FIBER [Concomitant]
     Active Substance: PSYLLIUM HUSK
  4. DOCUSATE CALCIUM. [Concomitant]
     Active Substance: DOCUSATE CALCIUM
  5. NITROFURANTOIN. [Concomitant]
     Active Substance: NITROFURANTOIN
  6. FLONASE [Concomitant]
     Active Substance: FLUTICASONE PROPIONATE
  7. ARICEPT [Concomitant]
     Active Substance: DONEPEZIL HYDROCHLORIDE
  8. NAMENDA [Suspect]
     Active Substance: MEMANTINE HYDROCHLORIDE
     Indication: PRODUCT USED FOR UNKNOWN INDICATION
     Dosage: 5 MILLIGRAM, BID
  9. SULFAMETHOXAZOLE AND TRIMETHOPRIM [Concomitant]
     Active Substance: SULFAMETHOXAZOLE\TRIMETHOPRIM
  10. SINEMET [Concomitant]
     Active Substance: CARBIDOPA\LEVODOPA
  11. MIDODRINE HCL [Concomitant]
     Active Substance: MIDODRINE HYDROCHLORIDE
  12. RYTARY [Concomitant]
     Active Substance: CARBIDOPA\LEVODOPA
  13. NORTHERA [Concomitant]
     Active Substance: DROXIDOPA
     Indication: PRODUCT USED FOR UNKNOWN INDICATION
     Dosage: UNK
  14. DUOPA [Concomitant]
     Active Substance: CARBIDOPA\LEVODOPA
  15. DONEPEZIL HCL [Concomitant]
     Active Substance: DONEPEZIL HYDROCHLORIDE
  16. NUPLAZID [Suspect]
     Active Substance: PIMAVANSERIN TARTRATE
     Indication: PARKINSON^S DISEASE
     Dosage: 34 MILLIGRAM, QD
     Route: 048
     Dates: start: 2020
  17. COMTAN [Concomitant]
     Active Substance: ENTACAPONE
  18. VITAMIN D3 [Concomitant]
     Active Substance: CHOLECALCIFEROL
  19. PYRIDOSTIGMINE BROMIDE EXTENDED RELEASE [Concomitant]
     Active Substance: PYRIDOSTIGMINE BROMIDE
  20. PROBIOTIC [BIFIDOBACTERIUM INFANTIS;LACTOBACILLUS ACIDOPHILUS] [Concomitant]

REACTIONS (2)
  - Delusion [Unknown]
  - Wrong technique in product usage process [Unknown]
